FAERS Safety Report 7988364-3 (Version None)
Quarter: 2011Q4

REPORT INFORMATION
  Report Type: 
  Country: None (occurrence: None)
  Receive Date: 20111216
  Receipt Date: 20111208
  Transmission Date: 20120403
  Serious: Yes (Other)
  Sender: FDA-Public Use
  Company Number: DE-MPIJNJ-2011-06305

PATIENT

DRUGS (8)
  1. VELCADE [Suspect]
     Indication: MULTIPLE MYELOMA
     Dosage: UNK
  2. PREDNISONE [Suspect]
     Indication: MULTIPLE MYELOMA
  3. LENALIDOMIDE [Suspect]
     Indication: MULTIPLE MYELOMA
  4. MELPHALAN HYDROCHLORIDE [Suspect]
     Indication: MULTIPLE MYELOMA
  5. DEXAMETHASONE [Suspect]
     Indication: MULTIPLE MYELOMA
  6. DEXAMETHASONE [Suspect]
     Dosage: 40 MG, Q4WEEKS
  7. CYCLOPHOSPHAMIDE [Suspect]
     Indication: MULTIPLE MYELOMA
  8. DOXORUBICIN HCL [Concomitant]
     Indication: MULTIPLE MYELOMA
     Dosage: 4 MG, UNK

REACTIONS (4)
  - HEPATITIS B [None]
  - PANCYTOPENIA [None]
  - NEURALGIA [None]
  - QUALITY OF LIFE DECREASED [None]
